FAERS Safety Report 18933239 (Version 1)
Quarter: 2021Q1

REPORT INFORMATION
  Report Type: Report from Study
  Country: CA (occurrence: CA)
  Receive Date: 20210224
  Receipt Date: 20210224
  Transmission Date: 20210420
  Serious: Yes (Death, Other)
  Sender: FDA-Public Use
  Company Number: CA-PFIZER INC-2021179183

PATIENT

DRUGS (3)
  1. HIRUDIN [Concomitant]
     Active Substance: HIRUDIN
     Dosage: UNK (PLACEBO)
  2. HEPARIN SODIUM. [Suspect]
     Active Substance: HEPARIN SODIUM
     Dosage: 5000 IU; BOLUS
     Route: 040
  3. HEPARIN SODIUM. [Suspect]
     Active Substance: HEPARIN SODIUM
     Dosage: UNK (15 UNITS KG?1 H?1; INFUSION)

REACTIONS (1)
  - Haemorrhage [Fatal]
